FAERS Safety Report 5427853-2 (Version None)
Quarter: 2007Q3

REPORT INFORMATION
  Report Type: 
  Country: None (occurrence: None)
  Receive Date: 20070823
  Receipt Date: 20070817
  Transmission Date: 20080115
  Serious: Yes (Death, Life-Threatening, Hospitalization)
  Sender: FDA-Public Use
  Company Number: CLOF-10615

PATIENT
  Age: 39 Year
  Sex: Male

DRUGS (24)
  1. CLOFARABINE. MFR: GENZYME [Suspect]
     Indication: BONE MARROW CONDITIONING REGIMEN
     Dosage: 20 MG/M2 QD X 5 IV
     Route: 042
     Dates: start: 20070624, end: 20070628
  2. MELPHALAN [Suspect]
     Indication: BONE MARROW CONDITIONING REGIMEN
     Dosage: 70 MG/M2 QD IV
     Route: 042
     Dates: start: 20070630, end: 20070701
  3. THIOTEPA [Suspect]
     Indication: BONE MARROW CONDITIONING REGIMEN
     Dosage: 10 MG/KG ONCE IV
     Route: 042
     Dates: start: 20070629, end: 20070629
  4. VANCOMYCIN [Concomitant]
  5. MYCOPHENOLATE MOFETIL [Concomitant]
  6. IPRATROPIUM/ALBUTEROL [Concomitant]
  7. LEVOFLOXACIN [Concomitant]
  8. FILGRASTIM [Concomitant]
  9. MUPIROCIN [Concomitant]
  10. DAPTOMYCIN [Concomitant]
  11. SIROLIMUS [Concomitant]
  12. MEROPENEM [Concomitant]
  13. PANTOPRAZOLE SODIUM [Concomitant]
  14. MICAFUNGIN SODIUM [Concomitant]
  15. FOLIC ACID [Concomitant]
  16. METRONIDAZOLE [Concomitant]
  17. HYDROCORTISONE-NEOMYCIN-POLYMYXIN B. [Concomitant]
  18. PHYTONADIONE [Concomitant]
  19. METHYLPREDNISOLONE 16MG TAB [Concomitant]
  20. LEUKINE [Concomitant]
  21. ALBUMIN (HUMAN) [Concomitant]
  22. CYANOCOBALAMIN [Concomitant]
  23. ACYCLOVIR [Concomitant]
  24. SOLIA [Concomitant]

REACTIONS (14)
  - CATHETER SEPSIS [None]
  - CONFUSIONAL STATE [None]
  - DIARRHOEA [None]
  - GENERAL PHYSICAL HEALTH DETERIORATION [None]
  - HAEMATEMESIS [None]
  - HAEMOPTYSIS [None]
  - HALLUCINATION [None]
  - HYPERBILIRUBINAEMIA [None]
  - HYPOTENSION [None]
  - LOWER GASTROINTESTINAL HAEMORRHAGE [None]
  - MENTAL STATUS CHANGES [None]
  - MUCOSAL INFLAMMATION [None]
  - RENAL FAILURE ACUTE [None]
  - VENOOCCLUSIVE DISEASE [None]
